FAERS Safety Report 25537908 (Version 1)
Quarter: 2025Q3

REPORT INFORMATION
  Report Type: Spontaneous
  Country: GB (occurrence: GB)
  Receive Date: 20250710
  Receipt Date: 20250710
  Transmission Date: 20251020
  Serious: Yes (Other)
  Sender: AUROBINDO
  Company Number: GB-MHRA-MED-202506262037259200-NWRDV

PATIENT
  Age: 72 Year
  Sex: Female
  Weight: 76 kg

DRUGS (5)
  1. CEPHALEXIN [Suspect]
     Active Substance: CEPHALEXIN
     Indication: Kidney infection
     Dosage: 500 MILLIGRAM, 3 TIMES A DAY (FOR 7 DAYS)
     Route: 065
     Dates: start: 20250609
  2. AMLODIPINE [Concomitant]
     Active Substance: AMLODIPINE BESYLATE
     Indication: Product used for unknown indication
     Route: 065
  3. LEFLUNOMIDE [Concomitant]
     Active Substance: LEFLUNOMIDE
     Indication: Product used for unknown indication
     Route: 065
  4. ROSUVASTATIN [Concomitant]
     Active Substance: ROSUVASTATIN
     Indication: Product used for unknown indication
     Route: 065
  5. LOSARTAN [Concomitant]
     Active Substance: LOSARTAN
     Indication: Product used for unknown indication
     Route: 065

REACTIONS (3)
  - Muscular weakness [Unknown]
  - Myalgia [Not Recovered/Not Resolved]
  - Insomnia [Unknown]

NARRATIVE: CASE EVENT DATE: 20250611
